FAERS Safety Report 21481678 (Version 1)
Quarter: 2022Q4

REPORT INFORMATION
  Report Type: Spontaneous
  Country: US (occurrence: US)
  Receive Date: 20221020
  Receipt Date: 20221020
  Transmission Date: 20230112
  Serious: No
  Sender: FDA-Public Use
  Company Number: US-CELLTRION INC.-2022US002443

PATIENT

DRUGS (1)
  1. INFLECTRA [Suspect]
     Active Substance: INFLIXIMAB-DYYB
     Indication: Product used for unknown indication
     Dosage: 600 MG, Q 12 WEEKS; INFUSE 600MG IV EVERY 12 WEEKS QUANTITY 6 REFILLS 3 (100 MG/20ML)
     Route: 042

REACTIONS (2)
  - Unevaluable event [Unknown]
  - Off label use [Unknown]
